FAERS Safety Report 8250264-1 (Version None)
Quarter: 2012Q2

REPORT INFORMATION
  Report Type: 
  Country: None (occurrence: None)
  Receive Date: 20120402
  Receipt Date: 20120320
  Transmission Date: 20120825
  Serious: Yes (Other)
  Sender: FDA-Public Use
  Company Number: FR-VERTEX PHARMACEUTICALS INC.-000000000000000402

PATIENT
  Age: 23 Year
  Sex: Male

DRUGS (3)
  1. RIBAVIRIN [Concomitant]
     Indication: PRODUCT USED FOR UNKNOWN INDICATION
     Dosage: DOSAGE FORM: UNSPECIFIED
  2. INCIVO (TELAPREVIR) [Suspect]
     Indication: PRODUCT USED FOR UNKNOWN INDICATION
     Dosage: DOSAGE FORM: TABLET
     Route: 048
     Dates: start: 20120216
  3. PEGASYS [Concomitant]
     Indication: PRODUCT USED FOR UNKNOWN INDICATION
     Dosage: DOSAGE FORM: UNSPECIFIED

REACTIONS (3)
  - VOMITING [None]
  - ASTHENIA [None]
  - MALAISE [None]
